FAERS Safety Report 25500775 (Version 1)
Quarter: 2025Q3

REPORT INFORMATION
  Report Type: Spontaneous
  Country: US (occurrence: US)
  Receive Date: 20250701
  Receipt Date: 20250701
  Transmission Date: 20251020
  Serious: Yes (Life-Threatening, Other)
  Sender: RARE DISEASE THERAPEUTICS, INC.
  Company Number: US-Rare Disease Therapeutics, Inc.-2179711

PATIENT
  Age: 67 Year
  Sex: Male

DRUGS (1)
  1. ANAVIP [Suspect]
     Active Substance: PIT VIPER (CROTALINAE) IMMUNE GLOBULIN ANTIVENIN (EQUINE)
     Dates: start: 20240427

REACTIONS (8)
  - Anxiety [Unknown]
  - Anaphylactic reaction [Unknown]
  - Urticaria [Unknown]
  - Blood pressure decreased [Unknown]
  - Dyspnoea [Unknown]
  - Oedema [Unknown]
  - Hyperhidrosis [Unknown]
  - Paraesthesia [Unknown]
